FAERS Safety Report 11761181 (Version 3)
Quarter: 2021Q4

REPORT INFORMATION
  Report Type: Spontaneous
  Country: US (occurrence: US)
  Receive Date: 20151120
  Receipt Date: 20211126
  Transmission Date: 20220304
  Serious: Yes (Other)
  Sender: FDA-Public Use
  Company Number: US-SA-2015SA183094

PATIENT
  Age: 78 Year
  Sex: Male

DRUGS (6)
  1. DOCETAXEL [Interacting]
     Active Substance: DOCETAXEL
     Indication: Prostate cancer metastatic
     Dosage: 75 MG/M2,Q3W
     Route: 065
  2. CARVEDILOL [Interacting]
     Active Substance: CARVEDILOL
     Dosage: UNK UNK,UNK
     Route: 065
  3. DRONEDARONE [Interacting]
     Active Substance: DRONEDARONE
     Dosage: UNK UNK,UNK
     Route: 065
  4. BICALUTAMIDE [Interacting]
     Active Substance: BICALUTAMIDE
     Indication: Prostate cancer metastatic
     Dosage: UNK UNK,UNK
     Route: 065
  5. BICALUTAMIDE [Interacting]
     Active Substance: BICALUTAMIDE
     Indication: Antiandrogen therapy
  6. LEUPROLIDE ACETATE [Concomitant]
     Active Substance: LEUPROLIDE ACETATE
     Indication: Antiandrogen therapy
     Dosage: UNK

REACTIONS (15)
  - Cholangitis sclerosing [Unknown]
  - Drug level increased [Unknown]
  - Drug interaction [Unknown]
  - Biliary obstruction [Unknown]
  - Biliary dilatation [Unknown]
  - Cholestasis [Unknown]
  - Blood alkaline phosphatase increased [Unknown]
  - Alanine aminotransferase increased [Unknown]
  - Aspartate aminotransferase increased [Unknown]
  - Blood bilirubin increased [Unknown]
  - Computerised tomogram abnormal [Unknown]
  - Magnetic resonance imaging abnormal [Unknown]
  - Bile duct stenosis [Unknown]
  - Cholestasis [Unknown]
  - Biliary fibrosis [Unknown]
